FAERS Safety Report 14126102 (Version 1)
Quarter: 2017Q4

REPORT INFORMATION
  Report Type: Spontaneous
  Country: US (occurrence: US)
  Receive Date: 20171025
  Receipt Date: 20171025
  Transmission Date: 20180321
  Serious: No
  Sender: FDA-Public Use
  Company Number: US-BAYER-2017-206025

PATIENT
  Age: 92 Year
  Sex: Female
  Weight: 142 kg

DRUGS (2)
  1. APIXABAN [Concomitant]
     Active Substance: APIXABAN
  2. MIRALAX [Suspect]
     Active Substance: POLYETHYLENE GLYCOL 3350
     Indication: GASTROINTESTINAL DISORDER
     Route: 048

REACTIONS (2)
  - Product use issue [Unknown]
  - Palpitations [Unknown]
